FAERS Safety Report 6294923-9 (Version None)
Quarter: 2009Q3

REPORT INFORMATION
  Report Type: 
  Country: None (occurrence: None)
  Receive Date: 20090731
  Receipt Date: 20090731
  Transmission Date: 20100115
  Serious: No
  Sender: FDA-Public Use
  Company Number: None

PATIENT
  Age: 51 Year
  Sex: Female
  Weight: 58.9676 kg

DRUGS (1)
  1. ZICAM GEL SWABS ZINCUM GLUCONICUM/ZICAM 2X [Suspect]
     Indication: NASOPHARYNGITIS
     Dosage: TOTAL OF 9 SWABS/2-3 DAYS, 3-4 TIMES/DAY, NASAL
     Route: 045
     Dates: start: 20090504, end: 20090506

REACTIONS (2)
  - HYPOGEUSIA [None]
  - PAROSMIA [None]
